FAERS Safety Report 20347254 (Version 2)
Quarter: 2022Q1

REPORT INFORMATION
  Report Type: Report from Study
  Country: US (occurrence: US)
  Receive Date: 20220118
  Receipt Date: 20220121
  Transmission Date: 20220423
  Serious: No
  Sender: FDA-Public Use
  Company Number: US-NOVARTISTESTPH-NVSC2022US008727

PATIENT
  Sex: Female

DRUGS (1)
  1. ILARIS [Suspect]
     Active Substance: CANAKINUMAB
     Indication: Product used for unknown indication
     Dosage: 80 MG, EVERY 56 DAYS
     Route: 058
     Dates: start: 20191010, end: 20220114

REACTIONS (2)
  - SARS-CoV-2 test positive [Recovering/Resolving]
  - Inappropriate schedule of product administration [Unknown]
